FAERS Safety Report 4882207-2 (Version None)
Quarter: 2006Q1

REPORT INFORMATION
  Report Type: 
  Country: None (occurrence: None)
  Receive Date: 20060113
  Receipt Date: 20060113
  Transmission Date: 20060701
  Serious: No
  Sender: FDA-Public Use
  Company Number: None

PATIENT
  Age: 62 Year

DRUGS (2)
  1. CISPLATIN [Suspect]
  2. IRINOTECAN HCL [Suspect]

REACTIONS (8)
  - ALCOHOL WITHDRAWAL SYNDROME [None]
  - CLOSTRIDIUM DIFFICILE TOXIN TEST POSITIVE [None]
  - DEHYDRATION [None]
  - DIARRHOEA [None]
  - NAUSEA [None]
  - NEUTROPHIL COUNT DECREASED [None]
  - RENAL FAILURE [None]
  - VOMITING [None]
